FAERS Safety Report 4489331-7 (Version None)
Quarter: 2004Q4

REPORT INFORMATION
  Report Type: 
  Country: None (occurrence: None)
  Receive Date: 20041026
  Receipt Date: 20041011
  Transmission Date: 20050328
  Serious: Yes (Hospitalization)
  Sender: FDA-Public Use
  Company Number: 2004-BP-09715AU

PATIENT
  Age: 85 Year
  Sex: Female

DRUGS (1)
  1. MOBIC [Suspect]
     Dosage: 15 MG 15 MG, 1 DAILY) PO
     Route: 048
     Dates: end: 20040531

REACTIONS (1)
  - ACUTE PULMONARY OEDEMA [None]
